FAERS Safety Report 17100529 (Version 2)
Quarter: 2020Q1

REPORT INFORMATION
  Report Type: Spontaneous
  Country: US (occurrence: US)
  Receive Date: 20191202
  Receipt Date: 20200218
  Transmission Date: 20200409
  Serious: Yes (Other)
  Sender: FDA-Public Use
  Company Number: US-BAYER-2019-215818

PATIENT
  Age: 35 Year
  Sex: Female
  Weight: 122 kg

DRUGS (1)
  1. KYLEENA [Suspect]
     Active Substance: LEVONORGESTREL
     Indication: CONTRACEPTION
     Dosage: 17.5 MCG/24HR, CONT
     Route: 015
     Dates: start: 20191111, end: 20191122

REACTIONS (4)
  - Abdominal pain lower [Recovered/Resolved]
  - Device difficult to use [None]
  - Embedded device [None]
  - Uterine cervix stenosis [Recovered/Resolved]

NARRATIVE: CASE EVENT DATE: 20191122
